FAERS Safety Report 4840808-1 (Version None)
Quarter: 2005Q4

REPORT INFORMATION
  Report Type: 
  Country: None (occurrence: None)
  Receive Date: 20051130
  Receipt Date: 20050131
  Transmission Date: 20060501
  Serious: No
  Sender: FDA-Public Use
  Company Number: US-BRISTOL-MYERS SQUIBB COMPANY-12843223

PATIENT
  Age: 66 Year
  Sex: Female

DRUGS (1)
  1. AVALIDE [Suspect]
     Route: 048

REACTIONS (1)
  - COUGH [None]
